FAERS Safety Report 14329140 (Version 2)
Quarter: 2018Q1

REPORT INFORMATION
  Report Type: Spontaneous
  Country: LU (occurrence: LU)
  Receive Date: 20171227
  Receipt Date: 20180110
  Transmission Date: 20180509
  Serious: Yes (Other)
  Sender: FDA-Public Use
  Company Number: LU-PFIZER INC-2017543320

PATIENT
  Age: 82 Year
  Sex: Male

DRUGS (1)
  1. LEDERTREXATE [Suspect]
     Active Substance: METHOTREXATE
     Indication: RHEUMATOID ARTHRITIS
     Dosage: 10 MG, WEEKLY
     Dates: start: 2002

REACTIONS (2)
  - Cerebrovascular accident [Unknown]
  - Thrombosis [Unknown]

NARRATIVE: CASE EVENT DATE: 201703
